FAERS Safety Report 9286952 (Version 1)
Quarter: 2013Q2

REPORT INFORMATION
  Report Type: Spontaneous
  Country: GB (occurrence: None)
  Receive Date: 20130509
  Receipt Date: 20130509
  Transmission Date: 20140414
  Serious: Yes (Other)
  Sender: FDA-Public Use
  Company Number: GER/UKI/13/0029335

PATIENT
  Age: 21 Year
  Sex: Female

DRUGS (2)
  1. FLUOXETINE (FLUOXETINE HYDROCHLORIDE) [Suspect]
     Indication: DEPRESSION
  2. METHYLPHENIDATE [Suspect]
     Indication: ATTENTION DEFICIT/HYPERACTIVITY DISORDER

REACTIONS (2)
  - Exposure during pregnancy [None]
  - Postpartum depression [None]
